FAERS Safety Report 19399945 (Version 2)
Quarter: 2021Q2

REPORT INFORMATION
  Report Type: Spontaneous
  Country: US (occurrence: US)
  Receive Date: 20210610
  Receipt Date: 20210621
  Transmission Date: 20210717
  Serious: Yes (Other)
  Sender: FDA-Public Use
  Company Number: US-TEVA-2021-US-1920111

PATIENT
  Age: 59 Year
  Sex: Female

DRUGS (10)
  1. GEMCITABINE. [Suspect]
     Active Substance: GEMCITABINE
     Indication: RHABDOID TUMOUR
  2. IRINOTECAN [Suspect]
     Active Substance: IRINOTECAN
     Indication: PANCREATIC CARCINOMA METASTATIC
     Dosage: RECEIVED THREE DOSES AS PART OF THE MFOLFIRINOX REGIMEN
     Route: 065
     Dates: start: 201906, end: 201907
  3. NAB?PACLITAXEL [Suspect]
     Active Substance: PACLITAXEL
     Indication: PANCREATIC CARCINOMA METASTATIC
     Route: 065
     Dates: start: 201907
  4. IRINOTECAN [Suspect]
     Active Substance: IRINOTECAN
     Indication: RHABDOID TUMOUR
  5. 5?FLUOROURACIL [Suspect]
     Active Substance: FLUOROURACIL
     Indication: PANCREATIC CARCINOMA METASTATIC
     Dosage: RECEIVED THREE DOSES AS PART OF THE MFOLFIRINOX REGIMEN
     Route: 065
     Dates: start: 201906, end: 201907
  6. 5?FLUOROURACIL [Suspect]
     Active Substance: FLUOROURACIL
     Indication: RHABDOID TUMOUR
  7. NAB?PACLITAXEL [Suspect]
     Active Substance: PACLITAXEL
     Indication: RHABDOID TUMOUR
  8. OXALIPLATIN. [Suspect]
     Active Substance: OXALIPLATIN
     Indication: PANCREATIC CARCINOMA METASTATIC
     Dosage: RECEIVED THREE DOSES AS PART OF THE MFOLFIRINOX REGIMEN
     Route: 065
     Dates: start: 201906, end: 201907
  9. OXALIPLATIN. [Suspect]
     Active Substance: OXALIPLATIN
     Indication: RHABDOID TUMOUR
  10. GEMCITABINE. [Suspect]
     Active Substance: GEMCITABINE
     Indication: PANCREATIC CARCINOMA METASTATIC
     Route: 065
     Dates: start: 201907

REACTIONS (4)
  - Rash [Unknown]
  - Cytopenia [Unknown]
  - Treatment failure [Unknown]
  - Neuropathy peripheral [Unknown]

NARRATIVE: CASE EVENT DATE: 201906
